FAERS Safety Report 8535668-1 (Version None)
Quarter: 2012Q3

REPORT INFORMATION
  Report Type: 
  Country: None (occurrence: None)
  Receive Date: 20120725
  Receipt Date: 20120720
  Transmission Date: 20120928
  Serious: No
  Sender: FDA-Public Use
  Company Number: US-PFIZER INC-2012132667

PATIENT
  Sex: Female
  Weight: 26.757 kg

DRUGS (1)
  1. CHILDREN'S ADVIL [Suspect]
     Indication: PYREXIA
     Dosage: TWO TEASPOONS, 4X/DAY
     Route: 048
     Dates: start: 20120601

REACTIONS (2)
  - PYREXIA [None]
  - DRUG INEFFECTIVE [None]
